FAERS Safety Report 4802875-0 (Version None)
Quarter: 2005Q4

REPORT INFORMATION
  Report Type: 
  Country: None (occurrence: None)
  Receive Date: 20051019
  Receipt Date: 20051007
  Transmission Date: 20060501
  Serious: Yes (Hospitalization)
  Sender: FDA-Public Use
  Company Number: FR-BRISTOL-MYERS SQUIBB COMPANY-13139571

PATIENT

DRUGS (1)
  1. ABILIFY [Suspect]

REACTIONS (1)
  - CONDITION AGGRAVATED [None]
